FAERS Safety Report 7365079-6 (Version None)
Quarter: 2011Q1

REPORT INFORMATION
  Report Type: 
  Country: None (occurrence: None)
  Receive Date: 20110321
  Receipt Date: 20110310
  Transmission Date: 20110831
  Serious: Yes (Hospitalization)
  Sender: FDA-Public Use
  Company Number: US-ASTRAZENECA-2011SE14271

PATIENT
  Age: 54 Year
  Sex: Male
  Weight: 113.9 kg

DRUGS (5)
  1. PROLOXIN [Concomitant]
  2. ZYPREXA [Concomitant]
  3. SEROQUEL [Suspect]
     Indication: SCHIZOPHRENIA
     Route: 048
     Dates: start: 20040101, end: 20110101
  4. DECANOID [Concomitant]
  5. COGENTIN [Concomitant]

REACTIONS (3)
  - DIABETES MELLITUS [None]
  - DRUG DOSE OMISSION [None]
  - MENTAL DISORDER [None]
